FAERS Safety Report 6998607-0 (Version None)
Quarter: 2010Q3

REPORT INFORMATION
  Report Type: 
  Country: None (occurrence: None)
  Receive Date: 20100920
  Receipt Date: 20070311
  Transmission Date: 20110219
  Serious: Yes (Other)
  Sender: FDA-Public Use
  Company Number: US-ASTRAZENECA-2006UW25468

PATIENT
  Age: 19728 Day
  Sex: Male
  Weight: 114.8 kg

DRUGS (17)
  1. SEROQUEL [Suspect]
     Indication: ANXIETY
     Dosage: 50 MG TO 150 MG
     Route: 048
     Dates: start: 20040102, end: 20060501
  2. SEROQUEL [Suspect]
     Indication: DEPRESSION
     Dosage: 50 MG TO 150 MG
     Route: 048
     Dates: start: 20040102, end: 20060501
  3. SEROQUEL [Suspect]
     Indication: BIPOLAR DISORDER
     Dosage: 50 MG TO 150 MG
     Route: 048
     Dates: start: 20040102, end: 20060501
  4. SEROQUEL [Suspect]
     Indication: ANGER
     Dosage: 50 MG TO 150 MG
     Route: 048
     Dates: start: 20040102, end: 20060501
  5. SEROQUEL [Suspect]
     Indication: INSOMNIA
     Dosage: 50 MG TO 150 MG
     Route: 048
     Dates: start: 20040102, end: 20060501
  6. SEROQUEL [Suspect]
     Route: 048
     Dates: start: 20040816, end: 20060124
  7. SEROQUEL [Suspect]
     Route: 048
     Dates: start: 20040816, end: 20060124
  8. SEROQUEL [Suspect]
     Route: 048
     Dates: start: 20040816, end: 20060124
  9. SEROQUEL [Suspect]
     Route: 048
     Dates: start: 20040816, end: 20060124
  10. SEROQUEL [Suspect]
     Route: 048
     Dates: start: 20040816, end: 20060124
  11. DEPAKOTE ER [Concomitant]
     Dates: start: 20031219
  12. HALDOL [Concomitant]
     Route: 048
     Dates: start: 19991011
  13. ELAVIL [Concomitant]
     Route: 048
     Dates: start: 19991011
  14. SYNTHROID [Concomitant]
     Route: 048
     Dates: start: 19991011
  15. EFFEXOR XR [Concomitant]
     Indication: AFFECTIVE DISORDER
     Dates: start: 20000625
  16. LIPITOR [Concomitant]
     Dates: start: 20000625
  17. IBUPROFEN [Concomitant]
     Route: 048
     Dates: end: 20000625

REACTIONS (4)
  - BLOOD GLUCOSE INCREASED [None]
  - DIABETES MELLITUS [None]
  - DIABETIC COMA [None]
  - DIABETIC KETOACIDOSIS [None]
